FAERS Safety Report 7363670-4 (Version None)
Quarter: 2011Q1

REPORT INFORMATION
  Report Type: 
  Country: None (occurrence: None)
  Receive Date: 20110321
  Receipt Date: 20110314
  Transmission Date: 20110831
  Serious: Yes (Hospitalization, Other)
  Sender: FDA-Public Use
  Company Number: US-ROXANE LABORATORIES, INC.-2011-RO-00309RO

PATIENT
  Age: 68 Year
  Sex: Male

DRUGS (1)
  1. PREDNISONE [Suspect]
     Indication: EOSINOPHILIC PNEUMONIA

REACTIONS (2)
  - LIPOMATOUS HYPERTROPHY OF THE INTERATRIAL SEPTUM [None]
  - PLATYPNOEA [None]
